FAERS Safety Report 6294964-1 (Version None)
Quarter: 2009Q3

REPORT INFORMATION
  Report Type: 
  Country: None (occurrence: None)
  Receive Date: 20090731
  Receipt Date: 20090731
  Transmission Date: 20100115
  Serious: Yes (Disabling)
  Sender: FDA-Public Use
  Company Number: None

PATIENT
  Sex: Female
  Weight: 135.1719 kg

DRUGS (10)
  1. XOLAIR [Suspect]
     Indication: ASTHMA
     Dosage: 300MG Q2WEEKS SQ
     Route: 058
     Dates: start: 20060905, end: 20090714
  2. ADVAIR HFA [Concomitant]
  3. ZYFLO [Concomitant]
  4. SINGULAIR [Concomitant]
  5. ALBUTEROL [Concomitant]
  6. NEXIUN [Concomitant]
  7. LEVOXYL [Concomitant]
  8. COREG [Concomitant]
  9. LASIX [Concomitant]
  10. LOTENSIN [Concomitant]

REACTIONS (2)
  - CONGESTIVE CARDIOMYOPATHY [None]
  - PULMONARY HYPERTENSION [None]
